FAERS Safety Report 8574392-6 (Version None)
Quarter: 2012Q3

REPORT INFORMATION
  Report Type: 
  Country: None (occurrence: None)
  Receive Date: 20120806
  Receipt Date: 20120801
  Transmission Date: 20120928
  Serious: Yes (Hospitalization)
  Sender: FDA-Public Use
  Company Number: IT-ROCHE-1096453

PATIENT
  Sex: Female

DRUGS (4)
  1. SOLU-MEDROL [Concomitant]
  2. ACETAMINOPHEN [Concomitant]
  3. MABTHERA [Suspect]
     Indication: RHEUMATOID ARTHRITIS
     Route: 041
     Dates: start: 20120330, end: 20120413
  4. TRIMETON [Concomitant]

REACTIONS (4)
  - GLOSSITIS [None]
  - PYREXIA [None]
  - GRANULOCYTE COUNT DECREASED [None]
  - MALAISE [None]
